FAERS Safety Report 6488683-6 (Version None)
Quarter: 2009Q4

REPORT INFORMATION
  Report Type: 
  Country: None (occurrence: None)
  Receive Date: 20091210
  Receipt Date: 20091201
  Transmission Date: 20100525
  Serious: Yes (Death, Other)
  Sender: FDA-Public Use
  Company Number: IL-CELGENEUS-082-20785-09120468

PATIENT

DRUGS (11)
  1. THALIDOMIDE [Suspect]
     Indication: MULTIPLE MYELOMA
     Dosage: 50-200MG
     Route: 048
  2. BISPHOSPHONATES [Concomitant]
     Indication: DRUG USE FOR UNKNOWN INDICATION
     Route: 051
  3. IMMUNOGLOBULINS [Concomitant]
     Indication: DRUG USE FOR UNKNOWN INDICATION
     Route: 051
  4. DEXAMETHASONE TAB [Concomitant]
     Indication: MULTIPLE MYELOMA
     Route: 065
  5. CISPLATIN [Concomitant]
     Indication: MULTIPLE MYELOMA
     Route: 065
  6. DOXORUBICIN [Concomitant]
     Indication: MULTIPLE MYELOMA
     Route: 065
  7. CYCLOPHOSPHAMIDE [Concomitant]
     Indication: MULTIPLE MYELOMA
     Route: 065
  8. ETOPOSIDE [Concomitant]
     Indication: MULTIPLE MYELOMA
     Route: 065
  9. MELPHALAN [Concomitant]
     Indication: MULTIPLE MYELOMA
     Route: 051
  10. BORTEZOMIB [Concomitant]
     Indication: MULTIPLE MYELOMA
     Route: 065
  11. LMWH [Concomitant]
     Route: 065

REACTIONS (10)
  - ARRHYTHMIA [None]
  - BACTERAEMIA [None]
  - CLOSTRIDIUM DIFFICILE SEPSIS [None]
  - DEEP VEIN THROMBOSIS [None]
  - FEBRILE NEUTROPENIA [None]
  - INFECTION [None]
  - INTESTINAL PERFORATION [None]
  - MULTIPLE MYELOMA [None]
  - NEUTROPENIA [None]
  - SEPTIC SHOCK [None]
